FAERS Safety Report 9437467 (Version 1)
Quarter: 2013Q3

REPORT INFORMATION
  Report Type: Spontaneous
  Country: IT (occurrence: IT)
  Receive Date: 20130802
  Receipt Date: 20130802
  Transmission Date: 20140515
  Serious: Yes (Hospitalization, Other)
  Sender: FDA-Public Use
  Company Number: IT-PFIZER INC-2013193467

PATIENT
  Age: 21 Year
  Sex: Female
  Weight: 66 kg

DRUGS (2)
  1. SALAZOPYRIN EN-TABS [Suspect]
     Indication: SPONDYLITIS
     Dosage: 4 DF, 1X/DAY
     Route: 048
     Dates: start: 20130508, end: 20130601
  2. YAZ [Concomitant]
     Dosage: 1 DF, UNK
     Route: 048
     Dates: start: 20130529

REACTIONS (5)
  - Drug reaction with eosinophilia and systemic symptoms [Recovered/Resolved]
  - Liver injury [Recovered/Resolved]
  - Lymphadenopathy [Recovered/Resolved]
  - Weight increased [Unknown]
  - Respiratory failure [Recovered/Resolved]
